FAERS Safety Report 16802383 (Version 3)
Quarter: 2020Q1

REPORT INFORMATION
  Report Type: Report from Study
  Country: US (occurrence: US)
  Receive Date: 20190912
  Receipt Date: 20200325
  Transmission Date: 20200409
  Serious: Yes (Hospitalization, Other)
  Sender: FDA-Public Use
  Company Number: US-ACTELION-A-US2017-152599

PATIENT
  Age: 75 Year
  Sex: Female
  Weight: 74.83 kg

DRUGS (3)
  1. SILDENAFIL CITRATE. [Concomitant]
     Active Substance: SILDENAFIL CITRATE
  2. OPSUMIT [Suspect]
     Active Substance: MACITENTAN
     Indication: PULMONARY HYPERTENSION
     Dosage: 10 MG, QD
     Route: 048
     Dates: start: 20170321
  3. XARELTO [Suspect]
     Active Substance: RIVAROXABAN
     Indication: PRODUCT USED FOR UNKNOWN INDICATION
     Route: 065

REACTIONS (30)
  - Impaired gastric emptying [Unknown]
  - Continuous positive airway pressure [Unknown]
  - Abdominal pain [Recovered/Resolved]
  - Upper gastrointestinal haemorrhage [Recovered/Resolved]
  - Thrombosis [Unknown]
  - Nausea [Unknown]
  - Diarrhoea [Unknown]
  - Ear infection [Unknown]
  - Unevaluable event [Unknown]
  - Headache [Unknown]
  - Iron deficiency anaemia [Unknown]
  - Myalgia [Unknown]
  - Ulcer [Unknown]
  - Pruritus [Unknown]
  - Vagal nerve stimulator implantation [Unknown]
  - Deep vein thrombosis [Unknown]
  - Dizziness [Unknown]
  - Cholecystitis [Recovered/Resolved]
  - Cholecystectomy [Recovered/Resolved]
  - Asthenia [Unknown]
  - Oropharyngeal pain [Unknown]
  - Faeces discoloured [Unknown]
  - Blood count abnormal [Not Recovered/Not Resolved]
  - Conduction disorder [Unknown]
  - Restless legs syndrome [Unknown]
  - Transfusion [Unknown]
  - Microcytic anaemia [Recovered/Resolved]
  - Hypotension [Unknown]
  - Fibromyalgia [Unknown]
  - Anaemia [Unknown]

NARRATIVE: CASE EVENT DATE: 20170517
